FAERS Safety Report 6553079-5 (Version None)
Quarter: 2010Q1

REPORT INFORMATION
  Report Type: 
  Country: None (occurrence: None)
  Receive Date: 20100127
  Receipt Date: 20090408
  Transmission Date: 20100710
  Serious: No
  Sender: FDA-Public Use
  Company Number: A0756306A

PATIENT

DRUGS (2)
  1. IMITREX [Suspect]
     Indication: DRUG USE FOR UNKNOWN INDICATION
  2. GSK AUTOINJECTOR [Suspect]
     Indication: DRUG USE FOR UNKNOWN INDICATION

REACTIONS (4)
  - DEVICE FAILURE [None]
  - DRUG INEFFECTIVE [None]
  - HEADACHE [None]
  - PRODUCT QUALITY ISSUE [None]
